FAERS Safety Report 5635855-6 (Version None)
Quarter: 2008Q1

REPORT INFORMATION
  Report Type: 
  Country: None (occurrence: None)
  Receive Date: 20080221
  Receipt Date: 20080213
  Transmission Date: 20080703
  Serious: Yes (Other)
  Sender: FDA-Public Use
  Company Number: 2008US000531

PATIENT
  Age: 10 Year

DRUGS (3)
  1. PROGRAF [Suspect]
     Indication: RENAL TRANSPLANT
  2. MYCONPHENOLATE SODIUM (MYCOPHENOLATE SODIUM) [Concomitant]
  3. CORTICOSTEROIDS [Concomitant]

REACTIONS (2)
  - FOCAL SEGMENTAL GLOMERULOSCLEROSIS [None]
  - PROTEINURIA [None]
